FAERS Safety Report 20730701 (Version 2)
Quarter: 2024Q2

REPORT INFORMATION
  Report Type: Spontaneous
  Country: US (occurrence: US)
  Receive Date: 20220420
  Receipt Date: 20240415
  Transmission Date: 20240715
  Serious: No
  Sender: FDA-Public Use
  Company Number: US-ASTELLAS-2021US020509

PATIENT
  Age: 48 Year
  Sex: Female

DRUGS (12)
  1. LEXISCAN [Suspect]
     Active Substance: REGADENOSON
     Indication: Product used for unknown indication
     Dosage: UNK, UNKNOWN FREQ.
     Route: 065
     Dates: start: 2013
  2. LEXISCAN [Suspect]
     Active Substance: REGADENOSON
     Indication: Product used for unknown indication
     Dosage: UNK, UNKNOWN FREQ.
     Route: 065
     Dates: start: 2013
  3. LEXISCAN [Suspect]
     Active Substance: REGADENOSON
     Indication: Product used for unknown indication
     Dosage: UNK, UNKNOWN FREQ.
     Route: 065
     Dates: start: 2013
  4. LEXISCAN [Suspect]
     Active Substance: REGADENOSON
     Indication: Product used for unknown indication
     Dosage: UNK, UNKNOWN FREQ.
     Route: 065
     Dates: start: 2013
  5. LEXISCAN [Suspect]
     Active Substance: REGADENOSON
     Dosage: UNK, UNKNOWN FREQ.
     Route: 065
     Dates: start: 2017
  6. LEXISCAN [Suspect]
     Active Substance: REGADENOSON
     Dosage: UNK, UNKNOWN FREQ.
     Route: 065
     Dates: start: 2017
  7. LEXISCAN [Suspect]
     Active Substance: REGADENOSON
     Dosage: UNK, UNKNOWN FREQ.
     Route: 065
     Dates: start: 2017
  8. LEXISCAN [Suspect]
     Active Substance: REGADENOSON
     Dosage: UNK, UNKNOWN FREQ.
     Route: 065
     Dates: start: 2017
  9. LEXISCAN [Suspect]
     Active Substance: REGADENOSON
     Dosage: 0.4 MG/5 ML (0.08 MG/ML), WITHIN 10 SECONDS, UNKNOWN FREQ.
     Route: 065
     Dates: start: 202105, end: 202105
  10. LEXISCAN [Suspect]
     Active Substance: REGADENOSON
     Dosage: 0.4 MG/5 ML (0.08 MG/ML), WITHIN 10 SECONDS, UNKNOWN FREQ.
     Route: 065
     Dates: start: 202105, end: 202105
  11. LEXISCAN [Suspect]
     Active Substance: REGADENOSON
     Dosage: 0.4 MG/5 ML (0.08 MG/ML), WITHIN 10 SECONDS, UNKNOWN FREQ.
     Route: 065
     Dates: start: 202105, end: 202105
  12. LEXISCAN [Suspect]
     Active Substance: REGADENOSON
     Dosage: 0.4 MG/5 ML (0.08 MG/ML), WITHIN 10 SECONDS, UNKNOWN FREQ.
     Route: 065
     Dates: start: 202105, end: 202105

REACTIONS (1)
  - Rash [Not Recovered/Not Resolved]

NARRATIVE: CASE EVENT DATE: 20210501
